FAERS Safety Report 13715457 (Version 9)
Quarter: 2018Q4

REPORT INFORMATION
  Report Type: Report from Study
  Country: None (occurrence: NL)
  Receive Date: 20170704
  Receipt Date: 20181128
  Transmission Date: 20190204
  Serious: Yes (Hospitalization)
  Sender: FDA-Public Use
  Company Number: NL-ABBVIE-17P-114-2022568-00

PATIENT
  Age: 75 Year
  Sex: Female
  Weight: 54 kg

DRUGS (11)
  1. DUODOPA [Suspect]
     Active Substance: CARBIDOPA\LEVODOPA
     Dosage: MD: 3 CD: 5.3 ED: 2 .5 NIGHT: CD: 5.0 ED: 2.5
     Route: 050
     Dates: start: 201808
  2. MOVICOLON [Concomitant]
     Active Substance: POLYETHYLENE GLYCOL 3350\POTASSIUM CHLORIDE\SODIUM BICARBONATE\SODIUM CHLORIDE
     Indication: ABNORMAL FAECES
  3. VITAMIN B12 [Concomitant]
     Active Substance: CYANOCOBALAMIN
     Indication: PRODUCT USED FOR UNKNOWN INDICATION
  4. CLOZAPINE. [Concomitant]
     Active Substance: CLOZAPINE
     Indication: PRODUCT USED FOR UNKNOWN INDICATION
  5. DUODOPA [Suspect]
     Active Substance: CARBIDOPA\LEVODOPA
     Dosage: MD: 3, CD: 6.8
     Route: 050
  6. LACTULOSE. [Concomitant]
     Active Substance: LACTULOSE
     Indication: PRODUCT USED FOR UNKNOWN INDICATION
  7. DUODOPA [Suspect]
     Active Substance: CARBIDOPA\LEVODOPA
     Dosage: MD: 3 CD: 7 ED: 2 NCD: 5.2 ED: 2.0
     Route: 050
  8. DUODOPA [Suspect]
     Active Substance: CARBIDOPA\LEVODOPA
     Dosage: MD 3.0 ML CD 4.5 ML/HR ED 2.5 ML
     Route: 050
  9. DUODOPA [Suspect]
     Active Substance: CARBIDOPA\LEVODOPA
     Indication: PARKINSON^S DISEASE
     Dosage: MD: 3.5, CD: 6.7, ED: 2, CND: 5.2
     Route: 050
     Dates: start: 20120622
  10. FOLIC ACID. [Concomitant]
     Active Substance: FOLIC ACID
     Indication: PRODUCT USED FOR UNKNOWN INDICATION
  11. RIVOTRIL [Concomitant]
     Active Substance: CLONAZEPAM
     Indication: PRODUCT USED FOR UNKNOWN INDICATION

REACTIONS (34)
  - General physical health deterioration [Not Recovered/Not Resolved]
  - Drug effect decreased [Not Recovered/Not Resolved]
  - Family stress [Unknown]
  - Therapeutic response shortened [Not Recovered/Not Resolved]
  - Stoma site discharge [Recovered/Resolved]
  - Emotional poverty [Not Recovered/Not Resolved]
  - Hypoaesthesia [Unknown]
  - Abnormal dreams [Not Recovered/Not Resolved]
  - Musculoskeletal stiffness [Not Recovered/Not Resolved]
  - Nutritional supplementation [Unknown]
  - Pancreatitis [Unknown]
  - Grip strength decreased [Unknown]
  - Asthenia [Not Recovered/Not Resolved]
  - Paraesthesia [Not Recovered/Not Resolved]
  - Dyskinesia [Recovered/Resolved]
  - Polyneuropathy [Not Recovered/Not Resolved]
  - Cholecystitis [Recovering/Resolving]
  - Dysphagia [Not Recovered/Not Resolved]
  - Stoma site erythema [Recovered/Resolved]
  - Heart valve incompetence [Not Recovered/Not Resolved]
  - Fall [Not Recovered/Not Resolved]
  - Gait disturbance [Unknown]
  - Stoma site reaction [Recovering/Resolving]
  - Limb discomfort [Not Recovered/Not Resolved]
  - Gait disturbance [Not Recovered/Not Resolved]
  - Weight decreased [Unknown]
  - Stoma site extravasation [Recovered/Resolved]
  - Hallucination [Not Recovered/Not Resolved]
  - Malaise [Unknown]
  - Urinary tract infection [Recovering/Resolving]
  - Balance disorder [Not Recovered/Not Resolved]
  - Urosepsis [Recovering/Resolving]
  - On and off phenomenon [Not Recovered/Not Resolved]
  - Dyskinesia [Recovering/Resolving]

NARRATIVE: CASE EVENT DATE: 201704
